FAERS Safety Report 12706136 (Version 2)
Quarter: 2016Q3

REPORT INFORMATION
  Report Type: Spontaneous
  Country: US (occurrence: US)
  Receive Date: 20160901
  Receipt Date: 20160901
  Transmission Date: 20161109
  Serious: No
  Sender: FDA-Public Use
  Company Number: US-JAZZ-2016-US-008014

PATIENT
  Sex: Female

DRUGS (30)
  1. BIO [Concomitant]
  2. PREGNENOLONE [Concomitant]
     Active Substance: PREGNENOLONE
  3. DIFLUCAN [Concomitant]
     Active Substance: FLUCONAZOLE
  4. MELATONIN [Concomitant]
     Active Substance: MELATONIN
  5. PROBIOTIC [Concomitant]
     Active Substance: PROBIOTICS NOS
  6. XYREM [Suspect]
     Active Substance: SODIUM OXYBATE
     Dosage: 4.5 G, BID
     Route: 048
     Dates: start: 201303
  7. CORTISOL [Concomitant]
     Active Substance: HYDROCORTISONE
  8. TRAZODONE HYDROCHLORIDE. [Concomitant]
     Active Substance: TRAZODONE HYDROCHLORIDE
  9. ZITHROMAX [Concomitant]
     Active Substance: AZITHROMYCIN DIHYDRATE
  10. XYREM [Suspect]
     Active Substance: SODIUM OXYBATE
     Indication: FIBROMYALGIA
     Dosage: 2.25 G, BID
     Route: 048
     Dates: start: 200912, end: 201106
  11. IRON [Concomitant]
     Active Substance: IRON
  12. MSM + GLUCOSAMINE [Concomitant]
  13. NORCO [Concomitant]
     Active Substance: ACETAMINOPHEN\HYDROCODONE BITARTRATE
  14. FLEXERIL [Concomitant]
     Active Substance: CYCLOBENZAPRINE HYDROCHLORIDE
  15. HYDROCODONE [Concomitant]
     Active Substance: HYDROCODONE
  16. DHEA [Concomitant]
     Active Substance: PRASTERONE
  17. EFFEXOR [Concomitant]
     Active Substance: VENLAFAXINE HYDROCHLORIDE
  18. XYREM [Suspect]
     Active Substance: SODIUM OXYBATE
     Dosage: 3.75 G, BID
     Route: 048
     Dates: start: 201106
  19. LYRICA [Concomitant]
     Active Substance: PREGABALIN
  20. METHYL BUTETISALICYLATE [Concomitant]
  21. VALTREX [Concomitant]
     Active Substance: VALACYCLOVIR HYDROCHLORIDE
  22. XYREM [Suspect]
     Active Substance: SODIUM OXYBATE
     Dosage: 3.75 G, BID
     Route: 048
     Dates: start: 201207, end: 201303
  23. CYMBALTA [Concomitant]
     Active Substance: DULOXETINE HYDROCHLORIDE
  24. IODORAL [Concomitant]
     Active Substance: IODINE\POTASSIUM IODIDE
  25. KRILL OIL [Concomitant]
     Active Substance: DIETARY SUPPLEMENT
  26. BACLOFEN. [Concomitant]
     Active Substance: BACLOFEN
  27. ERGOCALCIFEROL. [Concomitant]
     Active Substance: ERGOCALCIFEROL
  28. LIDOCAINE. [Concomitant]
     Active Substance: LIDOCAINE
  29. VITAMIN C [Concomitant]
     Active Substance: ASCORBIC ACID
  30. XANAX [Concomitant]
     Active Substance: ALPRAZOLAM

REACTIONS (2)
  - Pre-existing condition improved [Unknown]
  - Therapeutic response unexpected [Unknown]
